FAERS Safety Report 23790912 (Version 1)
Quarter: 2024Q2

REPORT INFORMATION
  Report Type: Spontaneous
  Country: IT (occurrence: None)
  Receive Date: 20240427
  Receipt Date: 20240427
  Transmission Date: 20240716
  Serious: Yes (Other)
  Sender: FDA-Public Use
  Company Number: None

PATIENT
  Age: 49 Year
  Sex: Male

DRUGS (2)
  1. OCREVUS [Suspect]
     Active Substance: OCRELIZUMAB
     Indication: Multiple sclerosis
     Dosage: LAST DOSE /FEB/2024
     Route: 042
     Dates: start: 201902
  2. METHYLPREDNISOLONE [Concomitant]
     Active Substance: METHYLPREDNISOLONE
     Dates: start: 20240311, end: 20240315

REACTIONS (1)
  - Malignant melanoma in situ [Recovered/Resolved]

NARRATIVE: CASE EVENT DATE: 20240401
